FAERS Safety Report 5356647-1 (Version None)
Quarter: 2007Q2

REPORT INFORMATION
  Report Type: 
  Country: None (occurrence: None)
  Receive Date: 20070612
  Receipt Date: 20070612
  Transmission Date: 20071010
  Serious: Yes (Other)
  Sender: FDA-Public Use
  Company Number: None

PATIENT
  Sex: Male

DRUGS (1)
  1. PURIFIED PROTEIN DERIVITIVE SANOFI PASTEUR [Suspect]
     Indication: TUBERCULIN TEST
     Dosage: 0.1CC PRN SQ
     Route: 058
     Dates: start: 20070606, end: 20070606

REACTIONS (5)
  - INJECTION SITE ERYTHEMA [None]
  - INJECTION SITE PAIN [None]
  - INJECTION SITE PRURITUS [None]
  - INJECTION SITE VESICLES [None]
  - TUBERCULOSIS SKIN TEST POSITIVE [None]
